FAERS Safety Report 6769680-X (Version None)
Quarter: 2010Q2

REPORT INFORMATION
  Report Type: 
  Country: None (occurrence: None)
  Receive Date: 20100603
  Receipt Date: 20100525
  Transmission Date: 20101027
  Serious: Yes (Hospitalization)
  Sender: FDA-Public Use
  Company Number: 2010SP029099

PATIENT
  Age: 84 Year
  Sex: Female
  Weight: 74 kg

DRUGS (10)
  1. REMERON [Suspect]
     Indication: DRUG USE FOR UNKNOWN INDICATION
     Dosage: 15 MG; QD; PO
     Route: 048
     Dates: start: 20100426, end: 20100502
  2. CIPROFLOX (CIPROFLOXACIN HYDROCHLORIDE) (CIPROFLOXACIN HYDROCHLORIDE) [Suspect]
     Indication: URINARY TRACT INFECTION
     Dosage: 500 MG; BID; PO
     Route: 048
     Dates: start: 20100428, end: 20100503
  3. DAFALGAN (PARACETAMOL /00020001/) [Suspect]
     Indication: Q FEVER
     Dosage: 1000 MG; ; PO
     Route: 048
     Dates: start: 20100427, end: 20100505
  4. ZOLPIDEM TARTRATE [Suspect]
     Indication: DRUG USE FOR UNKNOWN INDICATION
     Dosage: 6.25 MG; QD; PO, 12.5 MG; QD; PO
     Route: 048
     Dates: start: 20100421, end: 20100424
  5. ZOLPIDEM TARTRATE [Suspect]
     Indication: DRUG USE FOR UNKNOWN INDICATION
     Dosage: 6.25 MG; QD; PO, 12.5 MG; QD; PO
     Route: 048
     Dates: start: 20100425, end: 20100505
  6. DISTRANEURINE /00027501/ [Concomitant]
  7. CIPRALEX /01588502/ [Concomitant]
  8. TRANXILIUM [Concomitant]
  9. TORSEMIDE [Concomitant]
  10. TRANXILIUM [Concomitant]

REACTIONS (11)
  - ALANINE AMINOTRANSFERASE INCREASED [None]
  - ANAEMIA [None]
  - ASPARTATE AMINOTRANSFERASE INCREASED [None]
  - BILIRUBIN CONJUGATED INCREASED [None]
  - BLOOD ALKALINE PHOSPHATASE INCREASED [None]
  - BLOOD BILIRUBIN INCREASED [None]
  - CHOLESTATIC LIVER INJURY [None]
  - GAMMA-GLUTAMYLTRANSFERASE INCREASED [None]
  - RENAL FAILURE [None]
  - URINARY TRACT INFECTION [None]
  - VIRAL INFECTION [None]
